FAERS Safety Report 8302874-0 (Version None)
Quarter: 2012Q2

REPORT INFORMATION
  Report Type: 
  Country: None (occurrence: None)
  Receive Date: 20120420
  Receipt Date: 20120419
  Transmission Date: 20120825
  Serious: Yes (Hospitalization)
  Sender: FDA-Public Use
  Company Number: GB-ROCHE-1061049

PATIENT
  Sex: Male
  Weight: 100 kg

DRUGS (2)
  1. HYDROXYCHLOROQUINE SULFATE [Concomitant]
     Route: 065
  2. MABTHERA [Suspect]
     Indication: RHEUMATOID ARTHRITIS
     Route: 065
     Dates: start: 20100815

REACTIONS (1)
  - CARDIAC FAILURE [None]
